FAERS Safety Report 6443157-3 (Version None)
Quarter: 2009Q4

REPORT INFORMATION
  Report Type: 
  Country: None (occurrence: None)
  Receive Date: 20091117
  Receipt Date: 20091116
  Transmission Date: 20100525
  Serious: Yes (Hospitalization)
  Sender: FDA-Public Use
  Company Number: B0601187A

PATIENT
  Age: 56 Year
  Sex: Female

DRUGS (2)
  1. RELENZA [Suspect]
     Indication: H1N1 INFLUENZA
     Route: 055
     Dates: start: 20091025
  2. ANTIBIOTICS [Concomitant]
     Route: 065

REACTIONS (1)
  - PNEUMONIA [None]
